FAERS Safety Report 17888690 (Version 1)
Quarter: 2020Q2

REPORT INFORMATION
  Report Type: Spontaneous
  Country: US (occurrence: US)
  Receive Date: 20200611
  Receipt Date: 20200611
  Transmission Date: 20200714
  Serious: No
  Sender: FDA-Public Use
  Company Number: None

PATIENT
  Sex: Male

DRUGS (2)
  1. VERZENIO [Suspect]
     Active Substance: ABEMACICLIB
     Indication: BRAIN NEOPLASM MALIGNANT
     Route: 048
     Dates: start: 20200506
  2. VERZENIO [Suspect]
     Active Substance: ABEMACICLIB
     Indication: NASAL CAVITY CANCER
     Route: 048
     Dates: start: 20200506

REACTIONS (2)
  - Fatigue [None]
  - Diarrhoea [None]
